FAERS Safety Report 9174804 (Version 1)
Quarter: 2013Q1

REPORT INFORMATION
  Report Type: Spontaneous
  Country: US (occurrence: US)
  Receive Date: 20130320
  Receipt Date: 20130320
  Transmission Date: 20140127
  Serious: Yes (Hospitalization)
  Sender: FDA-Public Use
  Company Number: US-GILEAD-2013-0071337

PATIENT
  Sex: Female

DRUGS (3)
  1. LETAIRIS [Suspect]
     Indication: DYSPNOEA
     Dosage: 5 MG, QD
     Route: 048
     Dates: start: 20130121
  2. LETAIRIS [Suspect]
     Indication: OEDEMA PERIPHERAL
  3. LETAIRIS [Suspect]
     Indication: ABDOMINAL DISTENSION

REACTIONS (2)
  - Pulmonary hypertension [Unknown]
  - Fluid overload [Unknown]
